FAERS Safety Report 15506162 (Version 1)
Quarter: 2018Q4

REPORT INFORMATION
  Report Type: Spontaneous
  Country: US (occurrence: US)
  Receive Date: 20181016
  Receipt Date: 20181016
  Transmission Date: 20190205
  Serious: Yes (Other)
  Sender: FDA-Public Use
  Company Number: US-MYLANLABS-2018M1074701

PATIENT
  Sex: Male
  Weight: 84 kg

DRUGS (2)
  1. METOPROLOL TARTRATE TABLETS USP [Suspect]
     Active Substance: METOPROLOL TARTRATE
     Dosage: UNK UNK,
  2. METOPROLOL TARTRATE TABLETS USP [Suspect]
     Active Substance: METOPROLOL TARTRATE
     Indication: CARDIAC DISORDER
     Dosage: 25 MG, QD
     Dates: start: 20160101

REACTIONS (4)
  - Vitreous haemorrhage [Not Recovered/Not Resolved]
  - Eye disorder [Not Recovered/Not Resolved]
  - Eye haemorrhage [Not Recovered/Not Resolved]
  - Visual impairment [Not Recovered/Not Resolved]

NARRATIVE: CASE EVENT DATE: 20160101
